FAERS Safety Report 6973867-0 (Version None)
Quarter: 2010Q3

REPORT INFORMATION
  Report Type: 
  Country: None (occurrence: None)
  Receive Date: 20100909
  Receipt Date: 20100906
  Transmission Date: 20110219
  Serious: Yes (Life-Threatening)
  Sender: FDA-Public Use
  Company Number: B0673149A

PATIENT
  Age: 55 Year
  Sex: Female
  Weight: 89 kg

DRUGS (6)
  1. AUGMENTIN '125' [Suspect]
     Indication: SURGERY
     Route: 042
     Dates: start: 20100303, end: 20100303
  2. AUGMENTIN '125' [Suspect]
     Route: 048
     Dates: start: 20100401
  3. CITALOPRAM HYDROBROMIDE [Concomitant]
     Indication: DEPRESSION
     Dosage: 20MG PER DAY
     Route: 048
  4. LANSOPRAZOLE [Concomitant]
     Dosage: 15MG PER DAY
     Route: 048
  5. DICLOFENAC [Concomitant]
     Indication: ABDOMINAL PAIN
     Route: 048
  6. TRAMADOL HCL [Concomitant]
     Indication: ABDOMINAL PAIN
     Route: 048

REACTIONS (8)
  - BRADYCARDIA [None]
  - BRONCHOSPASM [None]
  - CYANOSIS [None]
  - HYPOTENSION [None]
  - HYPOXIA [None]
  - PHARYNGEAL OEDEMA [None]
  - RASH PRURITIC [None]
  - VOMITING [None]
